FAERS Safety Report 5558037-5 (Version None)
Quarter: 2007Q4

REPORT INFORMATION
  Report Type: 
  Country: None (occurrence: None)
  Receive Date: 20071214
  Receipt Date: 20071123
  Transmission Date: 20080405
  Serious: Yes (Hospitalization)
  Sender: FDA-Public Use
  Company Number: IT-RANBAXY-2007RR-11714

PATIENT

DRUGS (3)
  1. ACETAMINOPHEN [Suspect]
  2. CLAVULANATE POTASSIUM [Suspect]
  3. AMOXICILLIN [Suspect]

REACTIONS (4)
  - ANOREXIA [None]
  - ASTHENIA [None]
  - HEPATIC ENZYME ABNORMAL [None]
  - JAUNDICE [None]
